FAERS Safety Report 25363154 (Version 1)
Quarter: 2025Q2

REPORT INFORMATION
  Report Type: Spontaneous
  Country: US (occurrence: US)
  Receive Date: 20250527
  Receipt Date: 20250527
  Transmission Date: 20250716
  Serious: No
  Sender: PADAGIS
  Company Number: US-PADAGIS-2025PAD00624

PATIENT

DRUGS (2)
  1. ERYTHROMYCIN [Suspect]
     Active Substance: ERYTHROMYCIN
     Indication: Bacterial infection
     Route: 065
     Dates: start: 202503
  2. ERYTHROMYCIN [Suspect]
     Active Substance: ERYTHROMYCIN
     Route: 065
     Dates: start: 202503

REACTIONS (2)
  - Dry mouth [Not Recovered/Not Resolved]
  - Product use in unapproved indication [Unknown]
